FAERS Safety Report 18050009 (Version 6)
Quarter: 2022Q2

REPORT INFORMATION
  Report Type: Spontaneous
  Country: US (occurrence: US)
  Receive Date: 20200721
  Receipt Date: 20220404
  Transmission Date: 20220721
  Serious: Yes (Other)
  Sender: FDA-Public Use
  Company Number: US-PFIZER INC-2020277009

PATIENT
  Age: 76 Year
  Sex: Female
  Weight: 63.5 kg

DRUGS (2)
  1. XELJANZ XR [Suspect]
     Active Substance: TOFACITINIB CITRATE
     Indication: Rheumatoid arthritis
     Dosage: 11 MG, 1X/DAY
     Route: 048
  2. XELJANZ XR [Suspect]
     Active Substance: TOFACITINIB CITRATE
     Dosage: 11 MG, 1X/DAY (11MG ONE TIME A DAY BY MOUTH)
     Route: 048
     Dates: start: 2020

REACTIONS (7)
  - Sjogren^s syndrome [Unknown]
  - Condition aggravated [Unknown]
  - Autoimmune disorder [Unknown]
  - Sensitivity to weather change [Unknown]
  - Oropharyngeal discomfort [Unknown]
  - Candida infection [Unknown]
  - Cough [Not Recovered/Not Resolved]
